APPROVED DRUG PRODUCT: SODIUM CHLORIDE 14.6%
Active Ingredient: SODIUM CHLORIDE
Strength: 100MEQ/40ML (2.5MEQ/ML)
Dosage Form/Route: SOLUTION;INTRAVENOUS
Application: A212070 | Product #002 | TE Code: AP
Applicant: FRESENIUS KABI USA LLC
Approved: Apr 28, 2021 | RLD: No | RS: No | Type: RX